FAERS Safety Report 24395924 (Version 2)
Quarter: 2024Q4

REPORT INFORMATION
  Report Type: Spontaneous
  Country: US (occurrence: US)
  Receive Date: 20241004
  Receipt Date: 20241010
  Transmission Date: 20250114
  Serious: Yes (Life-Threatening, Hospitalization, Other)
  Sender: DR REDDYS
  Company Number: None

PATIENT
  Age: 62 Year
  Sex: Male

DRUGS (6)
  1. METFORMIN [Suspect]
     Active Substance: METFORMIN HYDROCHLORIDE
     Indication: Diabetes mellitus
  2. VASOPRESSIN [Suspect]
     Active Substance: VASOPRESSIN
     Indication: Vasoplegia syndrome
  3. NOREPINEPHRINE [Suspect]
     Active Substance: NOREPINEPHRINE\NOREPINEPHRINE BITARTRATE
     Indication: Vasoplegia syndrome
     Dosage: 1 ?G/KG/MIN
  4. NOREPINEPHRINE [Suspect]
     Active Substance: NOREPINEPHRINE\NOREPINEPHRINE BITARTRATE
     Dosage: 0.14MCG/KG/MIN
  5. EPINEPHRINE [Suspect]
     Active Substance: EPINEPHRINE
     Indication: Vasoplegia syndrome
     Dosage: 0.2 ?G/KG/MIN
  6. EPINEPHRINE [Suspect]
     Active Substance: EPINEPHRINE
     Dosage: 0.15MCG/KG/MIN

REACTIONS (6)
  - Toxicity to various agents [Unknown]
  - Lactic acidosis [Unknown]
  - Respiratory failure [Unknown]
  - Distributive shock [Unknown]
  - Vasoplegia syndrome [Recovered/Resolved]
  - Drug ineffective [Unknown]
